FAERS Safety Report 4946008-9 (Version None)
Quarter: 2006Q1

REPORT INFORMATION
  Report Type: 
  Country: None (occurrence: None)
  Receive Date: 20060316
  Receipt Date: 20051005
  Transmission Date: 20060701
  Serious: Yes (Hospitalization)
  Sender: FDA-Public Use
  Company Number: US-MERCK-0510USA04118

PATIENT
  Age: 85 Year
  Sex: Female
  Weight: 63 kg

DRUGS (2)
  1. VIOXX [Suspect]
     Indication: OSTEOARTHRITIS
     Route: 048
     Dates: start: 19960101, end: 20040901
  2. OXYCONTIN [Concomitant]
     Route: 065

REACTIONS (10)
  - ABDOMINAL PAIN [None]
  - BRONCHITIS [None]
  - CHRONIC OBSTRUCTIVE PULMONARY DISEASE [None]
  - DEEP VEIN THROMBOSIS [None]
  - DYSPNOEA [None]
  - HYPOXIA [None]
  - KNEE ARTHROPLASTY [None]
  - NECK PAIN [None]
  - OTITIS MEDIA [None]
  - VERTIGO [None]
